FAERS Safety Report 9064752 (Version 2)
Quarter: 2013Q2

REPORT INFORMATION
  Report Type: Spontaneous
  Country: JP (occurrence: JP)
  Receive Date: 20130213
  Receipt Date: 20130401
  Transmission Date: 20140414
  Serious: Yes (Other)
  Sender: FDA-Public Use
  Company Number: PHHY2012JP127283

PATIENT
  Age: 66 Year
  Sex: Female
  Weight: 48.98 kg

DRUGS (3)
  1. ZOMETA [Suspect]
     Indication: METASTASES TO BONE
     Dosage: UNK
     Route: 042
     Dates: start: 2007
  2. ZOMETA [Suspect]
     Dosage: UNK
     Route: 042
     Dates: start: 20120607, end: 20120607
  3. DENOSUMAB [Suspect]
     Indication: METASTASES TO BONE
     Dosage: 120 MG, QD
     Route: 058
     Dates: start: 20120705

REACTIONS (3)
  - Osteonecrosis of jaw [Not Recovered/Not Resolved]
  - Exposed bone in jaw [Not Recovered/Not Resolved]
  - Primary sequestrum [Not Recovered/Not Resolved]
